FAERS Safety Report 8547044-6 (Version None)
Quarter: 2012Q3

REPORT INFORMATION
  Report Type: 
  Country: None (occurrence: None)
  Receive Date: 20120727
  Receipt Date: 20120313
  Transmission Date: 20120928
  Serious: No
  Sender: FDA-Public Use
  Company Number: US-ASTRAZENECA-2012SE17367

PATIENT
  Age: 34 Year
  Sex: Male
  Weight: 68 kg

DRUGS (8)
  1. SEROQUEL [Suspect]
     Indication: BIPOLAR DISORDER
     Route: 048
     Dates: start: 20120109, end: 20120223
  2. SEROQUEL [Suspect]
     Dosage: THE DOSE WAS TITRATED UP TO 100 MG AFTER 5 TO 6 WEEKS
     Route: 048
  3. SEROQUEL [Suspect]
     Indication: MAJOR DEPRESSION
     Route: 048
     Dates: start: 20120109, end: 20120223
  4. KLONOPIN [Concomitant]
  5. SEROQUEL [Suspect]
     Route: 048
     Dates: start: 20120223, end: 20120309
  6. SEROQUEL [Suspect]
     Route: 048
     Dates: start: 20120223, end: 20120309
  7. SULBUTEX [Concomitant]
  8. SEROQUEL [Suspect]
     Dosage: THE DOSE WAS TITRATED UP TO 100 MG AFTER 5 TO 6 WEEKS
     Route: 048

REACTIONS (5)
  - FATIGUE [None]
  - LETHARGY [None]
  - SOMNOLENCE [None]
  - WEIGHT FLUCTUATION [None]
  - DRUG EFFECT DECREASED [None]
